FAERS Safety Report 10762334 (Version 2)
Quarter: 2015Q1

REPORT INFORMATION
  Report Type: Report from Study
  Country: US (occurrence: US)
  Receive Date: 20150204
  Receipt Date: 20150213
  Transmission Date: 20150721
  Serious: Yes (Hospitalization)
  Sender: FDA-Public Use
  Company Number: US-JNJFOC-20141215529

PATIENT
  Age: 48 Year
  Sex: Female
  Weight: 101.61 kg

DRUGS (2)
  1. XARELTO [Suspect]
     Active Substance: RIVAROXABAN
     Indication: THROMBOSIS PROPHYLAXIS
     Route: 048
  2. XARELTO [Suspect]
     Active Substance: RIVAROXABAN
     Indication: KNEE ARTHROPLASTY
     Route: 048

REACTIONS (3)
  - Cerebral haemorrhage [Unknown]
  - Pruritus generalised [Unknown]
  - Urticaria [Unknown]

NARRATIVE: CASE EVENT DATE: 20141210
